FAERS Safety Report 9855547 (Version 1)
Quarter: 2014Q1

REPORT INFORMATION
  Report Type: Spontaneous
  Country: US (occurrence: US)
  Receive Date: 20140130
  Receipt Date: 20140130
  Transmission Date: 20141002
  Serious: Yes (Other)
  Sender: FDA-Public Use
  Company Number: US-ASTELLAS-2014US000876

PATIENT
  Sex: 0

DRUGS (1)
  1. XTANDI [Suspect]
     Indication: PRODUCT USED FOR UNKNOWN INDICATION
     Dosage: UNK
     Route: 048
     Dates: start: 2013

REACTIONS (5)
  - Neurological symptom [Unknown]
  - Osteomyelitis [Unknown]
  - Brain abscess [Unknown]
  - Sinusitis [Unknown]
  - Cellulitis [Unknown]
